FAERS Safety Report 8032038-X (Version None)
Quarter: 2012Q1

REPORT INFORMATION
  Report Type: 
  Country: None (occurrence: None)
  Receive Date: 20120109
  Receipt Date: 20110118
  Transmission Date: 20120608
  Serious: No
  Sender: FDA-Public Use
  Company Number: US-ABBOTT-10P-163-0643591-00

PATIENT
  Sex: Male
  Weight: 90.8 kg

DRUGS (7)
  1. VALIUM [Concomitant]
     Indication: ANXIETY
  2. VICODIN [Suspect]
     Indication: BACK PAIN
     Dosage: 5/500 MILLIGRAM TWICE DAILY
     Dates: start: 20030601
  3. BENICAR [Concomitant]
     Indication: HYPERTENSION
     Dosage: HCT
  4. LIPITOR [Concomitant]
     Indication: BLOOD CHOLESTEROL INCREASED
  5. VICODIN [Suspect]
  6. VICODIN [Suspect]
     Indication: ANXIETY
     Dates: start: 20100801, end: 20100801
  7. LOVAZA [Concomitant]
     Indication: BLOOD TRIGLYCERIDES INCREASED

REACTIONS (6)
  - PRODUCT COLOUR ISSUE [None]
  - DRUG INEFFECTIVE [None]
  - PRODUCT SIZE ISSUE [None]
  - DRUG EFFECT DECREASED [None]
  - ABDOMINAL DISCOMFORT [None]
  - PAIN [None]
